FAERS Safety Report 16297201 (Version 3)
Quarter: 2021Q4

REPORT INFORMATION
  Report Type: Spontaneous
  Country: US (occurrence: US)
  Receive Date: 20190510
  Receipt Date: 20211020
  Transmission Date: 20220304
  Serious: Yes (Hospitalization, Other)
  Sender: FDA-Public Use
  Company Number: PHEH2019US019672

PATIENT
  Sex: Female

DRUGS (2)
  1. TASIGNA [Suspect]
     Active Substance: NILOTINIB
     Indication: Chronic myeloid leukaemia
     Dosage: UNK
     Route: 065
     Dates: start: 2008, end: 2013
  2. ALBUTEROL [Concomitant]
     Active Substance: ALBUTEROL
     Indication: Asthma
     Dosage: 1 PUFF INHALATION, Q4H
     Route: 065

REACTIONS (51)
  - Acute left ventricular failure [Unknown]
  - Cardiac failure congestive [Unknown]
  - Renal cyst [Unknown]
  - Cardiomegaly [Unknown]
  - Chest pain [Unknown]
  - Pulmonary oedema [Unknown]
  - Ejection fraction decreased [Unknown]
  - Left ventricular dysfunction [Unknown]
  - Pleural effusion [Unknown]
  - Blood urea increased [Unknown]
  - Tricuspid valve incompetence [Unknown]
  - Mitral valve incompetence [Unknown]
  - Pulmonary valve incompetence [Unknown]
  - Angina pectoris [Unknown]
  - Renal failure [Unknown]
  - Acute kidney injury [Unknown]
  - Coronary artery occlusion [Unknown]
  - Coronary artery disease [Unknown]
  - Myocardial infarction [Unknown]
  - Pulmonary hypertension [Unknown]
  - Peripheral vascular disorder [Unknown]
  - Injury [Unknown]
  - Swelling [Unknown]
  - Osteoporosis [Unknown]
  - Vitamin D deficiency [Unknown]
  - Oliguria [Unknown]
  - Hypokinesia [Unknown]
  - Glucose tolerance impaired [Unknown]
  - Diastolic dysfunction [Unknown]
  - Left atrial enlargement [Unknown]
  - Mitral valve calcification [Unknown]
  - Glomerular filtration rate decreased [Unknown]
  - Brain natriuretic peptide increased [Unknown]
  - Contusion [Unknown]
  - Dyspnoea [Unknown]
  - Hyperglycaemia [Unknown]
  - Essential hypertension [Unknown]
  - Peripheral swelling [Unknown]
  - Joint swelling [Unknown]
  - Blood creatinine increased [Unknown]
  - Troponin increased [Unknown]
  - Heart rate decreased [Unknown]
  - Right ventricular systolic pressure decreased [Unknown]
  - Weight decreased [Unknown]
  - Urinary tract infection [Unknown]
  - Anaemia [Unknown]
  - Peripheral arterial occlusive disease [Unknown]
  - Arteriosclerosis [Unknown]
  - Emotional distress [Unknown]
  - Anxiety [Unknown]
  - Pain [Unknown]
